FAERS Safety Report 7568583-0 (Version None)
Quarter: 2011Q2

REPORT INFORMATION
  Report Type: 
  Country: None (occurrence: None)
  Receive Date: 20110623
  Receipt Date: 20110613
  Transmission Date: 20111010
  Serious: Yes (Death, Hospitalization)
  Sender: FDA-Public Use
  Company Number: BE-JNJFOC-20110609271

PATIENT
  Sex: Female

DRUGS (2)
  1. DOXORUBICIN HYDROCHLORIDE [Suspect]
     Indication: OVARIAN CANCER METASTATIC
     Route: 042
     Dates: start: 20091123, end: 20091123
  2. AMG 386 [Suspect]
     Indication: METASTATIC NEOPLASM
     Route: 042
     Dates: start: 20091130, end: 20091214

REACTIONS (1)
  - INTESTINAL PERFORATION [None]
